FAERS Safety Report 7917994-X (Version None)
Quarter: 2011Q4

REPORT INFORMATION
  Report Type: 
  Country: None (occurrence: None)
  Receive Date: 20111116
  Receipt Date: 20111109
  Transmission Date: 20120403
  Serious: Yes (Hospitalization, Other)
  Sender: FDA-Public Use
  Company Number: US-ABBOTT-11P-163-0873730-00

PATIENT
  Sex: Female
  Weight: 118.04 kg

DRUGS (14)
  1. HUMIRA [Suspect]
     Indication: RHEUMATOID ARTHRITIS
     Dates: start: 20110901
  2. METFORMIN HCL [Concomitant]
     Indication: DIABETES MELLITUS
  3. LANTUS [Concomitant]
     Indication: DIABETES MELLITUS
     Route: 058
  4. FOLBIC [Concomitant]
     Indication: RHEUMATOID ARTHRITIS
  5. PRILOSEC [Concomitant]
     Indication: GASTROOESOPHAGEAL REFLUX DISEASE
  6. METHOTREXATE [Concomitant]
     Indication: RHEUMATOID ARTHRITIS
  7. LOSARTAN [Concomitant]
     Indication: HYPERTENSION
  8. ASPIRIN [Concomitant]
     Indication: CARDIAC DISORDER
  9. ZANTAC [Concomitant]
     Indication: GASTROOESOPHAGEAL REFLUX DISEASE
  10. SYMBICORT [Concomitant]
     Indication: ASTHMA
  11. PRAVOCHAL [Concomitant]
     Indication: BLOOD CHOLESTEROL INCREASED
  12. APIDRA INSULIN [Concomitant]
     Indication: DIABETES MELLITUS
     Route: 058
  13. MUSINEX [Concomitant]
     Indication: ASTHMA
  14. ALLEGRA [Concomitant]
     Indication: HYPERSENSITIVITY

REACTIONS (9)
  - CHEST PAIN [None]
  - FEELING ABNORMAL [None]
  - BURNING SENSATION [None]
  - CARDIAC DISORDER [None]
  - ANGINA PECTORIS [None]
  - PAIN IN EXTREMITY [None]
  - ELECTROCARDIOGRAM ABNORMAL [None]
  - SINUSITIS [None]
  - CARDIAC STRESS TEST ABNORMAL [None]
